FAERS Safety Report 7415549-7 (Version None)
Quarter: 2011Q2

REPORT INFORMATION
  Report Type: 
  Country: None (occurrence: None)
  Receive Date: 20110406
  Receipt Date: 20110324
  Transmission Date: 20111010
  Serious: Yes (Other)
  Sender: FDA-Public Use
  Company Number: US-1185292

PATIENT
  Age: 81 Year
  Sex: Female
  Weight: 68.0396 kg

DRUGS (5)
  1. COUMADIN [Concomitant]
  2. SYNTHROID [Concomitant]
  3. TRAVATAN [Suspect]
     Indication: GLAUCOMA
     Dosage: (ONE DROP IN EACH EYE OPHTHALMIC)
     Route: 047
     Dates: start: 20100601
  4. ANTIHYPERTENSIVES [Concomitant]
  5. AMLODIPINE [Concomitant]

REACTIONS (2)
  - SKIN HYPERPIGMENTATION [None]
  - TRICHIASIS [None]
